FAERS Safety Report 25352847 (Version 2)
Quarter: 2025Q2

REPORT INFORMATION
  Report Type: Spontaneous
  Country: DE (occurrence: DE)
  Receive Date: 20250523
  Receipt Date: 20250527
  Transmission Date: 20250717
  Serious: Yes (Other)
  Sender: PFIZER
  Company Number: DE-PFIZER INC-PV202500060360

PATIENT
  Age: 51 Year
  Sex: Female
  Weight: 58.7 kg

DRUGS (1)
  1. AZULFIDINE [Suspect]
     Active Substance: SULFASALAZINE
     Indication: Gastroenteritis radiation
     Dosage: 5 G, DAILY

REACTIONS (6)
  - Haemolysis [Unknown]
  - Heinz bodies [Unknown]
  - Methaemoglobinaemia [Unknown]
  - Haemolytic anaemia [Recovered/Resolved]
  - Drug ineffective for unapproved indication [Unknown]
  - Off label use [Unknown]
